FAERS Safety Report 9315497 (Version 1)
Quarter: 2013Q2

REPORT INFORMATION
  Report Type: Spontaneous
  Country: US (occurrence: US)
  Receive Date: 20130529
  Receipt Date: 20130529
  Transmission Date: 20140414
  Serious: Yes (Hospitalization, Other)
  Sender: FDA-Public Use
  Company Number: US-TEVA-407516USA

PATIENT
  Age: 70 Year
  Sex: Female
  Weight: 89.89 kg

DRUGS (6)
  1. PROAIR HFA [Suspect]
     Indication: BRONCHOSPASM
  2. HYDROCHLOROTHIAZIDE [Concomitant]
     Dosage: 25 MILLIGRAM DAILY;
     Route: 048
  3. ADVAIR [Concomitant]
  4. LOVASTATIN [Concomitant]
     Indication: BLOOD CHOLESTEROL
  5. BENZONATATE [Concomitant]
     Indication: COUGH
     Route: 048
  6. ALEVE [Concomitant]
     Indication: ARTHRITIS

REACTIONS (6)
  - Oxygen saturation decreased [Unknown]
  - Hypoacusis [Unknown]
  - Rhinorrhoea [Unknown]
  - Cough [Unknown]
  - Herpes zoster [Unknown]
  - Dyspnoea [Unknown]
